FAERS Safety Report 10100568 (Version 1)
Quarter: 2014Q2

REPORT INFORMATION
  Report Type: Spontaneous
  Country: ES (occurrence: ES)
  Receive Date: 20140423
  Receipt Date: 20140423
  Transmission Date: 20141212
  Serious: Yes (Hospitalization, Other)
  Sender: FDA-Public Use
  Company Number: ES-GLAXOSMITHKLINE-B0987922A

PATIENT
  Age: 77 Year
  Sex: Male

DRUGS (5)
  1. CARVEDILOL [Suspect]
     Indication: PRODUCT USED FOR UNKNOWN INDICATION
     Route: 065
  2. CLOPIDOGREL [Concomitant]
     Dosage: 75MG PER DAY
  3. FAMOTIDINE [Concomitant]
     Dosage: 20MG PER DAY
  4. TELMISARTAN [Concomitant]
     Dosage: 80MG PER DAY
  5. AMLODIPINE [Concomitant]
     Dosage: 10MG PER DAY

REACTIONS (14)
  - Toxicity to various agents [Recovered/Resolved]
  - Medication error [Unknown]
  - Depressed level of consciousness [Unknown]
  - Skeletal injury [Unknown]
  - Balance disorder [Unknown]
  - Disorientation [Unknown]
  - Sinus bradycardia [Unknown]
  - Cardiac murmur [Unknown]
  - Chest pain [Unknown]
  - Palpitations [Unknown]
  - Electrocardiogram QRS complex prolonged [Unknown]
  - Cardiac pacemaker insertion [Unknown]
  - Atrioventricular block [Unknown]
  - Hallucination, visual [Unknown]
